FAERS Safety Report 12369522 (Version 1)
Quarter: 2016Q2

REPORT INFORMATION
  Report Type: Report from Study
  Country: CA (occurrence: CA)
  Receive Date: 20160516
  Receipt Date: 20160516
  Transmission Date: 20160815
  Serious: Yes (Other)
  Sender: FDA-Public Use
  Company Number: PHHY2011CA59073

PATIENT
  Age: 80 Year
  Sex: Female

DRUGS (2)
  1. SANDOSTATIN LAR DEPOT [Suspect]
     Active Substance: OCTREOTIDE ACETATE
     Indication: NEUROENDOCRINE TUMOUR
     Dosage: 30 MG, QMO
     Route: 030
     Dates: start: 20091111
  2. SANDOSTATIN [Suspect]
     Active Substance: OCTREOTIDE ACETATE
     Indication: NEUROENDOCRINE TUMOUR
     Dosage: UNK
     Route: 058
     Dates: start: 200910, end: 20091123

REACTIONS (12)
  - Metastases to abdominal cavity [Unknown]
  - Benign gastric neoplasm [Unknown]
  - Diarrhoea [Unknown]
  - Underdose [Unknown]
  - Blood pressure systolic decreased [Unknown]
  - Visual impairment [Unknown]
  - Heart rate decreased [Unknown]
  - Body temperature decreased [Unknown]
  - Malignant neoplasm progression [Unknown]
  - Syringe issue [Unknown]
  - Needle issue [Unknown]
  - Blood pressure systolic increased [Unknown]

NARRATIVE: CASE EVENT DATE: 20150526
